FAERS Safety Report 8842997 (Version 2)
Quarter: 2012Q4

REPORT INFORMATION
  Report Type: 
  Country: JP (occurrence: JP)
  Receive Date: 20121016
  Receipt Date: 20121112
  Transmission Date: 20130627
  Serious: Yes (Hospitalization)
  Sender: FDA-Public Use
  Company Number: JP-AMGEN-JPNSP2012065418

PATIENT
  Age: 69 Year
  Sex: Male
  Weight: 55 kg

DRUGS (9)
  1. VECTIBIX [Suspect]
     Indication: LARGE INTESTINE CARCINOMA
     Route: 041
     Dates: start: 20121005, end: 20121005
  2. VECTIBIX [Suspect]
     Indication: COLON CANCER
  3. RESTAMIN [Concomitant]
     Indication: PROPHYLAXIS
     Route: 048
     Dates: start: 20121005, end: 20121005
  4. OPSO [Concomitant]
     Indication: ANALGESIC THERAPY
     Route: 048
     Dates: start: 20121005, end: 20121005
  5. NAFATAT [Concomitant]
     Indication: HYPERAMYLASAEMIA
     Route: 041
     Dates: start: 20121005, end: 20121005
  6. MIRACLID [Concomitant]
     Indication: HYPERAMYLASAEMIA
     Route: 041
     Dates: start: 20121005, end: 20121005
  7. WYSTAL [Concomitant]
     Indication: CHOLANGITIS
     Route: 041
     Dates: start: 20121005, end: 20121005
  8. GASTER [Concomitant]
     Indication: PROPHYLAXIS AGAINST GASTROINTESTINAL ULCER
     Route: 042
     Dates: start: 20121005, end: 20121005
  9. ROPION [Concomitant]
     Indication: ANALGESIC THERAPY
     Route: 042
     Dates: start: 20121005, end: 20121005

REACTIONS (1)
  - Abdominal pain [Recovered/Resolved]
